FAERS Safety Report 18897878 (Version 1)
Quarter: 2021Q1

REPORT INFORMATION
  Report Type: Spontaneous
  Country: US (occurrence: US)
  Receive Date: 20210212
  Receipt Date: 20210212
  Transmission Date: 20210420
  Serious: No
  Sender: FDA-Public Use
  Company Number: None

PATIENT
  Age: 66 Year
  Sex: Female
  Weight: 58.97 kg

DRUGS (6)
  1. CRESTOR [Concomitant]
     Active Substance: ROSUVASTATIN CALCIUM
  2. CALCIUM [Concomitant]
     Active Substance: CALCIUM
  3. BELSOMRA [Suspect]
     Active Substance: SUVOREXANT
     Indication: INSOMNIA
     Dosage: ?          QUANTITY:1 DF DOSAGE FORM;?
     Route: 048
     Dates: start: 20200111, end: 20210207
  4. ELOQUIST [Concomitant]
  5. PROLIA [Concomitant]
     Active Substance: DENOSUMAB
  6. DIOVAN [Concomitant]
     Active Substance: VALSARTAN

REACTIONS (3)
  - Abnormal dreams [None]
  - Nightmare [None]
  - Screaming [None]

NARRATIVE: CASE EVENT DATE: 20210207
